FAERS Safety Report 9484773 (Version 1)
Quarter: 2013Q3

REPORT INFORMATION
  Report Type: Spontaneous
  Country: US (occurrence: US)
  Receive Date: 20130828
  Receipt Date: 20130828
  Transmission Date: 20140515
  Serious: Yes (Death)
  Sender: FDA-Public Use
  Company Number: US-GLAXOSMITHKLINE-A1039243A

PATIENT
  Age: 62 Year
  Sex: Male

DRUGS (7)
  1. VOTRIENT [Suspect]
     Indication: MALIGNANT URINARY TRACT NEOPLASM
     Dosage: 800MG PER DAY
     Route: 048
     Dates: start: 20130501
  2. PROCHLORPERAZINE [Concomitant]
  3. SERTRALINE [Concomitant]
  4. OXYCODONE [Concomitant]
  5. TRAMADOL [Concomitant]
  6. ATORVASTATIN [Concomitant]
  7. METOPROLOL [Concomitant]

REACTIONS (1)
  - Death [Fatal]
